FAERS Safety Report 4740872-4 (Version None)
Quarter: 2005Q3

REPORT INFORMATION
  Report Type: 
  Country: None (occurrence: None)
  Receive Date: 20050810
  Receipt Date: 20050217
  Transmission Date: 20060218
  Serious: No
  Sender: FDA-Public Use
  Company Number: US-GLAXOSMITHKLINE-A0546128A

PATIENT
  Age: 29 Year
  Sex: Female

DRUGS (1)
  1. TAGAMET HB 200 [Suspect]
     Dates: start: 20050213, end: 20050213

REACTIONS (1)
  - VOMITING [None]
